FAERS Safety Report 16972703 (Version 1)
Quarter: 2019Q4

REPORT INFORMATION
  Report Type: Spontaneous
  Country: DE (occurrence: DE)
  Receive Date: 20191030
  Receipt Date: 20191030
  Transmission Date: 20200122
  Serious: Yes (Other)
  Sender: FDA-Public Use
  Company Number: DE-AMGEN-DEUSP2019177210

PATIENT
  Age: 56 Year
  Sex: Male
  Weight: 72 kg

DRUGS (1)
  1. REPATHA [Suspect]
     Active Substance: EVOLOCUMAB
     Indication: LIPID METABOLISM DISORDER
     Dosage: 140 MILLIGRAM
     Route: 058
     Dates: start: 20190917, end: 20191001

REACTIONS (6)
  - Respiratory distress [Recovered/Resolved]
  - Myalgia [Not Recovered/Not Resolved]
  - Panic attack [Recovered/Resolved]
  - Arthralgia [Not Recovered/Not Resolved]
  - Papule [Recovered/Resolved]
  - Influenza like illness [Not Recovered/Not Resolved]

NARRATIVE: CASE EVENT DATE: 20191002
